FAERS Safety Report 17054105 (Version 1)
Quarter: 2019Q4

REPORT INFORMATION
  Report Type: Spontaneous
  Country: US (occurrence: US)
  Receive Date: 20191022
  Receipt Date: 20191022
  Transmission Date: 20200122
  Serious: No
  Sender: FDA-Public Use
  Company Number: None

PATIENT
  Age: 71 Year
  Sex: Male
  Weight: 72.57 kg

DRUGS (14)
  1. ELIQUIS [Concomitant]
     Active Substance: APIXABAN
  2. METOPROLOL SUCC [Concomitant]
     Active Substance: METOPROLOL SUCCINATE
  3. BREO ELLIPTA [Concomitant]
     Active Substance: FLUTICASONE FUROATE\VILANTEROL TRIFENATATE
  4. METOPROLOL SUCC [Concomitant]
     Active Substance: METOPROLOL SUCCINATE
  5. MONELUKAST [Concomitant]
     Active Substance: MONTELUKAST SODIUM
  6. ROSUVASTATIN (CRESTOR [Concomitant]
  7. MAGNESIUM [Concomitant]
     Active Substance: MAGNESIUM
  8. ROSUVASTATIN. [Concomitant]
     Active Substance: ROSUVASTATIN
  9. DUPIXENT [Suspect]
     Active Substance: DUPILUMAB
     Indication: NASAL POLYPS
     Dosage: ?          QUANTITY:300 MG MILLIGRAM(S);OTHER FREQUENCY:EVERY TWO WEEKS-SA;?
     Route: 058
     Dates: start: 20190824, end: 20191005
  10. POTASSIUM CITRATE. [Concomitant]
     Active Substance: POTASSIUM CITRATE
  11. MULTIVITAMIN [Concomitant]
     Active Substance: VITAMINS
  12. LEVOTHYROXINE. [Concomitant]
     Active Substance: LEVOTHYROXINE
  13. VIT D [Concomitant]
     Active Substance: VITAMIN D NOS
  14. ZINC. [Concomitant]
     Active Substance: ZINC

REACTIONS (8)
  - Arthralgia [None]
  - Dizziness [None]
  - Loss of personal independence in daily activities [None]
  - Impaired driving ability [None]
  - Pain [None]
  - Myalgia [None]
  - Headache [None]
  - Discomfort [None]

NARRATIVE: CASE EVENT DATE: 20190824
